FAERS Safety Report 5332780-5 (Version None)
Quarter: 2007Q2

REPORT INFORMATION
  Report Type: 
  Country: None (occurrence: None)
  Receive Date: 20070518
  Receipt Date: 20070501
  Transmission Date: 20071010
  Serious: Yes (Hospitalization, Other)
  Sender: FDA-Public Use
  Company Number: PAR_1424_2007

PATIENT
  Age: 8 Year
  Sex: Male

DRUGS (3)
  1. IBUPROFEN [Suspect]
     Indication: VIRAEMIA
     Dosage: (600 MG, ORAL)
     Route: 048
  2. PARACETAMOL [Concomitant]
  3. CEFTRIAXONE [Concomitant]

REACTIONS (13)
  - ABDOMINAL RIGIDITY [None]
  - APPENDICECTOMY [None]
  - LUNG CONSOLIDATION [None]
  - MALAISE [None]
  - MUSCULOSKELETAL STIFFNESS [None]
  - OEDEMA PERIPHERAL [None]
  - PYELECTASIA [None]
  - RASH MACULAR [None]
  - RENAL PAPILLARY NECROSIS [None]
  - URETERIC OBSTRUCTION [None]
  - URETERIC STENOSIS [None]
  - URINE OUTPUT DECREASED [None]
  - VOMITING [None]
